FAERS Safety Report 21349774 (Version 1)
Quarter: 2022Q3

REPORT INFORMATION
  Report Type: Spontaneous
  Country: TW (occurrence: TW)
  Receive Date: 20220919
  Receipt Date: 20220919
  Transmission Date: 20221027
  Serious: Yes (Hospitalization)
  Sender: FDA-Public Use
  Company Number: TW-TRIS PHARMA, INC.-22TW010406

PATIENT

DRUGS (2)
  1. DYANAVEL XR [Suspect]
     Active Substance: AMPHETAMINE
     Indication: Product used for unknown indication
     Dosage: UNK
  2. OXYBATE [Suspect]
     Active Substance: OXYBATE
     Indication: Product used for unknown indication
     Dosage: UNK

REACTIONS (10)
  - Respiratory acidosis [Recovering/Resolving]
  - Loss of consciousness [Recovered/Resolved]
  - Toxicity to various agents [Recovering/Resolving]
  - Hypoxia [Recovering/Resolving]
  - Pneumonia [Recovering/Resolving]
  - Acute pulmonary oedema [Recovering/Resolving]
  - Sinus tachycardia [Recovering/Resolving]
  - Blood pressure increased [Recovering/Resolving]
  - Agitation [Recovering/Resolving]
  - Drug abuse [Recovering/Resolving]
